FAERS Safety Report 12778768 (Version 1)
Quarter: 2016Q3

REPORT INFORMATION
  Report Type: Spontaneous
  Country: GR (occurrence: GR)
  Receive Date: 20160926
  Receipt Date: 20160926
  Transmission Date: 20161109
  Serious: Yes (Life-Threatening, Hospitalization)
  Sender: FDA-Public Use
  Company Number: GR-ACCORD-044306

PATIENT
  Age: 51 Year
  Sex: Male

DRUGS (12)
  1. FOLINIC ACID [Suspect]
     Active Substance: LEUCOVORIN
     Indication: METASTASES TO LIVER
     Dosage: D1-D2:200MG/M2?D1 200MG/M2
  2. CISPLATIN. [Suspect]
     Active Substance: CISPLATIN
     Indication: METASTASES TO LIVER
     Dosage: D2 CDDP 80 MG/M2, D1-D2 CDDP 40MG/M2
  3. MESNA. [Suspect]
     Active Substance: MESNA
     Indication: METASTASES TO LIVER
     Dosage: D1-D2 1GR/M2 BEFORE IFOSFAMIDE, 1 G/M2 3 HRS AFTER THE IFOSFAMIDE DOSE AND 1 G/M2, 6HRS LATER
  4. AVASTIN [Suspect]
     Active Substance: BEVACIZUMAB
     Indication: METASTASES TO LIVER
     Dosage: D1 5MG/KG
  5. FLUOROURACIL. [Suspect]
     Active Substance: FLUOROURACIL
     Indication: METASTASES TO LIVER
  6. PACLITAXEL/PACLITAXEL LIPOSOME [Suspect]
     Active Substance: PACLITAXEL
     Indication: METASTASES TO LIVER
     Dosage: D1:175MG/M2
  7. ENDOXAN [Suspect]
     Active Substance: CYCLOPHOSPHAMIDE
     Indication: METASTASES TO LIVER
  8. VINORELBINE [Suspect]
     Active Substance: VINORELBINE\VINORELBINE TARTRATE
     Indication: METASTASES TO LIVER
     Dosage: D1-D3
  9. ONCOVIN [Suspect]
     Active Substance: VINCRISTINE SULFATE
     Indication: METASTASES TO LIVER
  10. DOXORUBICIN [Suspect]
     Active Substance: DOXORUBICIN
     Indication: METASTASES TO LIVER
  11. IRINOTECAN [Suspect]
     Active Substance: IRINOTECAN
     Indication: METASTASES TO LIVER
  12. IFOSFAMIDE. [Suspect]
     Active Substance: IFOSFAMIDE
     Indication: METASTASES TO LIVER
     Dosage: D1-D2 IFOSFAMIDE 2.5 G/M2

REACTIONS (2)
  - Therapy non-responder [Unknown]
  - Bone marrow toxicity [Unknown]
